FAERS Safety Report 8560383-8 (Version None)
Quarter: 2012Q3

REPORT INFORMATION
  Report Type: 
  Country: None (occurrence: None)
  Receive Date: 20120802
  Receipt Date: 20120725
  Transmission Date: 20120928
  Serious: Yes (Hospitalization, Other)
  Sender: FDA-Public Use
  Company Number: FR-BAYER-2011-117222

PATIENT
  Age: 81 Year
  Sex: Male
  Weight: 67 kg

DRUGS (6)
  1. SIMVASTATIN [Concomitant]
     Dosage: 1 DF, QD
     Route: 048
  2. NEXAVAR [Suspect]
     Dosage: UNK
     Dates: start: 20120208
  3. IRBESARTAN AND HYDROCHLOROTHIAZIDE [Concomitant]
     Dosage: 1 DF, QD
     Route: 048
  4. NEXAVAR [Suspect]
     Indication: HEPATIC NEOPLASM MALIGNANT
     Dosage: 400 MG, BID
     Dates: start: 20110209, end: 20111201
  5. RILMENIDINE [Concomitant]
     Dosage: 1 DF, BID
     Route: 048
  6. BISOPROLOL FUMARATE [Concomitant]
     Dosage: 1 DF, QD
     Route: 048

REACTIONS (1)
  - CORONARY ARTERY STENOSIS [None]
